FAERS Safety Report 12607314 (Version 1)
Quarter: 2016Q3

REPORT INFORMATION
  Report Type: Spontaneous
  Country: GB (occurrence: GB)
  Receive Date: 20160729
  Receipt Date: 20160729
  Transmission Date: 20161109
  Serious: Yes (Other)
  Sender: FDA-Public Use
  Company Number: GB-PFIZER INC-2016362358

PATIENT
  Age: 40 Year
  Sex: Male
  Weight: 101.6 kg

DRUGS (7)
  1. VENLAFAXINE HCL [Suspect]
     Active Substance: VENLAFAXINE HYDROCHLORIDE
     Indication: DEPRESSION
     Dosage: 75 MG, 2X/DAY
     Route: 048
  2. BACLOFEN. [Concomitant]
     Active Substance: BACLOFEN
     Dosage: UNK
  3. BUTRANS [Concomitant]
     Active Substance: BUPRENORPHINE
     Dosage: 20 MG, UNK
  4. VENLAFAXINE HCL [Suspect]
     Active Substance: VENLAFAXINE HYDROCHLORIDE
     Dosage: 75 MG, DAILY (ONE DAY TAKING 75MG)
     Route: 048
  5. CARBAMAZEPINE. [Concomitant]
     Active Substance: CARBAMAZEPINE
     Dosage: UNK
  6. RAMIPRIL. [Concomitant]
     Active Substance: RAMIPRIL
     Dosage: UNK
  7. BUTRANS [Concomitant]
     Active Substance: BUPRENORPHINE
     Dosage: 5 MG, UNK

REACTIONS (5)
  - Nausea [Recovered/Resolved]
  - Headache [Not Recovered/Not Resolved]
  - Pain [Recovering/Resolving]
  - Lethargy [Recovering/Resolving]
  - Dizziness [Recovered/Resolved with Sequelae]

NARRATIVE: CASE EVENT DATE: 20160701
